FAERS Safety Report 10176375 (Version 1)
Quarter: 2014Q2

REPORT INFORMATION
  Report Type: Spontaneous
  Country: US (occurrence: None)
  Receive Date: 20140515
  Receipt Date: 20140515
  Transmission Date: 20141212
  Serious: Yes (Other)
  Sender: FDA-Public Use
  Company Number: None

PATIENT
  Age: 56 Year
  Sex: Female
  Weight: 52.16 kg

DRUGS (7)
  1. BUTALBITAL, ACETAMINOPHEN, CAFFEINE AND CODEINE PHOSPHATE CAPSULES [Suspect]
     Indication: MIGRAINE
     Route: 048
     Dates: start: 20140329, end: 20140427
  2. BUTALBITAL, ACETAMINOPHEN, CAFFEINE AND CODEINE PHOSPHATE CAPSULES [Suspect]
     Indication: PAIN
     Route: 048
     Dates: start: 20140329, end: 20140427
  3. FIORICET WITH CODEINE [Concomitant]
  4. TYLENOL [Concomitant]
  5. ZYRTEC [Concomitant]
  6. MULTIVITAMINS [Concomitant]
  7. CALCIUM [Concomitant]

REACTIONS (2)
  - Inadequate analgesia [None]
  - Product quality issue [None]
